FAERS Safety Report 18578986 (Version 1)
Quarter: 2020Q4

REPORT INFORMATION
  Report Type: Spontaneous
  Country: US (occurrence: US)
  Receive Date: 20201202
  Receipt Date: 20201202
  Transmission Date: 20210114
  Serious: No
  Sender: FDA-Public Use
  Company Number: None

PATIENT
  Age: 45 Year
  Sex: Male
  Weight: 133.36 kg

DRUGS (1)
  1. TREMFYA [Suspect]
     Active Substance: GUSELKUMAB
     Indication: GUTTATE PSORIASIS
     Dosage: ?          OTHER FREQUENCY:WEEK 0 AND WEEK 4;?
     Route: 058
     Dates: start: 202012

REACTIONS (1)
  - SARS-CoV-2 test positive [None]
